FAERS Safety Report 16112292 (Version 1)
Quarter: 2019Q2

REPORT INFORMATION
  Report Type: Spontaneous
  Country: US (occurrence: US)
  Receive Date: 20190323
  Receipt Date: 20190323
  Transmission Date: 20190711
  Serious: No
  Sender: FDA-Public Use
  Company Number: None

PATIENT
  Age: 53 Year
  Sex: Female
  Weight: 111.15 kg

DRUGS (9)
  1. VITAMIN D NOS [Concomitant]
     Active Substance: VITAMIN D NOS
  2. KYBELLA [Suspect]
     Active Substance: DEOXYCHOLIC ACID
     Indication: FAT TISSUE INCREASED
     Dosage: ?          QUANTITY:2 VIAL (INJECTIONS);OTHER ROUTE:INJECTED INTO FAT UNDER CHIN?
     Dates: start: 20180824, end: 20181102
  3. ENZYMES [Concomitant]
  4. TURMERIC [Concomitant]
     Active Substance: HERBALS\TURMERIC
  5. COQ10 [Concomitant]
     Active Substance: UBIDECARENONE
  6. VITAMIN B [Concomitant]
     Active Substance: VITAMIN B
  7. BERBERINE [Concomitant]
     Active Substance: BERBERINE
  8. BIOTIN [Concomitant]
     Active Substance: BIOTIN
  9. LEVOTHYROXIN [Concomitant]
     Active Substance: LEVOTHYROXINE

REACTIONS (4)
  - Nodule [None]
  - Inflammation [None]
  - Tenderness [None]
  - Swelling [None]

NARRATIVE: CASE EVENT DATE: 20181102
